FAERS Safety Report 16871630 (Version 1)
Quarter: 2019Q4

REPORT INFORMATION
  Report Type: Spontaneous
  Country: CN (occurrence: CN)
  Receive Date: 20191001
  Receipt Date: 20191001
  Transmission Date: 20200122
  Serious: Yes (Other)
  Sender: FDA-Public Use
  Company Number: CN-BAXTER-2019BAX019040

PATIENT
  Age: 62 Year
  Sex: Male
  Weight: 74 kg

DRUGS (2)
  1. 5% MANNITOL INJECTION [Suspect]
     Active Substance: MANNITOL
     Indication: HEAD INJURY
     Route: 041
     Dates: start: 20190827, end: 20190827
  2. 5% MANNITOL INJECTION [Suspect]
     Active Substance: MANNITOL
     Indication: NECK INJURY

REACTIONS (1)
  - Hypersensitivity [Recovering/Resolving]

NARRATIVE: CASE EVENT DATE: 20190827
